FAERS Safety Report 8909672 (Version 1)
Quarter: 2012Q4

REPORT INFORMATION
  Report Type: 
  Country: GB (occurrence: GB)
  Receive Date: 20121115
  Receipt Date: 20121115
  Transmission Date: 20130627
  Serious: Yes (Other)
  Sender: FDA-Public Use
  Company Number: GB-PFIZER INC-2012280649

PATIENT
  Age: 51 Year
  Sex: Male
  Weight: 88.9 kg

DRUGS (3)
  1. CHAMPIX [Suspect]
     Indication: SMOKING CESSATION THERAPY
     Dosage: UNK
     Route: 048
     Dates: start: 201202
  2. CHAMPIX [Suspect]
     Dosage: 1 mg, UNK
     Route: 048
  3. TEGRETOL [Concomitant]
     Indication: EPILEPSY
     Dosage: 500 mg, UNK
     Route: 048

REACTIONS (1)
  - Epilepsy [Recovered/Resolved]
